FAERS Safety Report 11045289 (Version 1)
Quarter: 2015Q2

REPORT INFORMATION
  Report Type: Spontaneous
  Country: US (occurrence: US)
  Receive Date: 20150417
  Receipt Date: 20150417
  Transmission Date: 20150821
  Serious: No
  Sender: FDA-Public Use
  Company Number: US-TARO-2014TAR00483

PATIENT
  Sex: Female

DRUGS (1)
  1. NYSTATIN LIQUID [Suspect]
     Active Substance: NYSTATIN

REACTIONS (2)
  - Reaction to drug excipients [Unknown]
  - Alopecia [Unknown]
